FAERS Safety Report 9357468 (Version 1)
Quarter: 2013Q2

REPORT INFORMATION
  Report Type: Spontaneous
  Country: US (occurrence: None)
  Receive Date: 20130617
  Receipt Date: 20130617
  Transmission Date: 20140414
  Serious: Yes (Death)
  Sender: FDA-Public Use
  Company Number: 2013STPI000219

PATIENT
  Age: 76 Year
  Sex: Male

DRUGS (9)
  1. MATULANE (PROCARBAZINE HYDROCHLORIDE) CAPSULE, 50 MG [Suspect]
     Indication: BRAIN NEOPLASM MALIGNANT
     Route: 048
     Dates: end: 20130601
  2. MATULANE (PROCARBAZINE HYDROCHLORIDE) CAPSULE, 50 MG [Suspect]
     Indication: LUNG NEOPLASM MALIGNANT
     Route: 048
     Dates: end: 20130601
  3. AMLODIPINE BESYLATE (AMLODIPINE BESILATE) [Concomitant]
  4. FLUTICASONE PROPIONATE (FLUTICASONE PROPIONATE) [Concomitant]
  5. DIOVAN (VALSARTAN) [Concomitant]
  6. SIMVASTATIN (SIMVASTATIN) [Concomitant]
  7. PROMETHAZINE (PROMETHAZINE HYDROCHLORIIDE) [Concomitant]
  8. METOPROLOL SUCCINATE (METOPROLOL SUCCINATE) [Concomitant]
  9. OMEPRAZOLE ACID REDUCER (OMEPRAZOLE) [Concomitant]

REACTIONS (1)
  - Death [None]
